FAERS Safety Report 8938471 (Version 1)
Quarter: 2012Q4

REPORT INFORMATION
  Report Type: 
  Country: ES (occurrence: ES)
  Receive Date: 20121130
  Receipt Date: 20121130
  Transmission Date: 20130627
  Serious: Yes (Other)
  Sender: FDA-Public Use
  Company Number: ES-ACTELION-A-CH2012-75118

PATIENT
  Age: 42 Year
  Sex: Male
  Weight: 69 kg

DRUGS (13)
  1. TRACLEER [Suspect]
     Indication: DIGITAL ULCER
     Dosage: 125 mg, bid
     Route: 048
     Dates: start: 200607
  2. ILOPROST [Suspect]
     Dosage: UNK
     Route: 042
     Dates: start: 20081112
  3. PREDNISONE [Concomitant]
     Dosage: 60 mg, qd
     Dates: start: 200606
  4. PREDNISONE [Concomitant]
     Dosage: 20 mg, qd
     Dates: start: 200812
  5. PREDNISONE [Concomitant]
     Dosage: 5 mg, qd
  6. CYCLOPHOSPHAMIDE [Concomitant]
     Dosage: 100 mg, qd
     Route: 048
     Dates: start: 200609, end: 200812
  7. NIFEDIPINE [Concomitant]
     Dosage: 30 mg, qd
     Dates: start: 200606
  8. OMEPRAZOLE [Concomitant]
     Dosage: 40 mg, qd
     Dates: start: 200606
  9. TRIMETHOPRIM SULFAMETHOXAZOLE [Concomitant]
     Dosage: UNK, Q3Week
  10. CALCIUM [Concomitant]
  11. VITAMIN D [Concomitant]
  12. DIAZEPAM [Concomitant]
  13. SERTRALINE [Concomitant]

REACTIONS (6)
  - Systemic sclerosis [Recovering/Resolving]
  - Disease progression [Recovering/Resolving]
  - Dizziness postural [Recovered/Resolved]
  - Headache [Recovered/Resolved]
  - Gastrointestinal disorder [Recovered/Resolved]
  - Raynaud^s phenomenon [Recovered/Resolved]
